FAERS Safety Report 24906086 (Version 2)
Quarter: 2025Q1

REPORT INFORMATION
  Report Type: Spontaneous
  Country: CN (occurrence: CN)
  Receive Date: 20250130
  Receipt Date: 20250211
  Transmission Date: 20250408
  Serious: Yes (Hospitalization, Other)
  Sender: ASTELLAS
  Company Number: CN-ASTELLAS-2025-AER-004497

PATIENT
  Age: 68 Year
  Sex: Female

DRUGS (6)
  1. TACROLIMUS [Interacting]
     Active Substance: TACROLIMUS
     Indication: Renal transplant
     Route: 048
  2. TACROLIMUS [Interacting]
     Active Substance: TACROLIMUS
     Dosage: RESUMED
     Route: 048
  3. DALTEPARIN [Interacting]
     Active Substance: DALTEPARIN
     Indication: Thrombosis prophylaxis
     Route: 058
  4. PAXLOVID [Interacting]
     Active Substance: NIRMATRELVIR\RITONAVIR
     Indication: COVID-19 pneumonia
     Dosage: 300 MG COMBINED WITH RITONAVIR 100 MG
     Route: 065
  5. MYCOPHENOLATE MOFETIL [Concomitant]
     Active Substance: MYCOPHENOLATE MOFETIL
     Indication: Renal transplant
     Route: 048
  6. METHYLPREDNISOLONE [Concomitant]
     Active Substance: METHYLPREDNISOLONE
     Indication: Renal transplant
     Route: 048

REACTIONS (5)
  - Renal haemorrhage [Recovered/Resolved]
  - Acute kidney injury [Recovered/Resolved]
  - COVID-19 pneumonia [Recovered/Resolved]
  - Coagulopathy [Recovered/Resolved]
  - Drug interaction [Unknown]
